FAERS Safety Report 17915436 (Version 2)
Quarter: 2021Q3

REPORT INFORMATION
  Report Type: Spontaneous
  Country: CO (occurrence: CO)
  Receive Date: 20200619
  Receipt Date: 20210716
  Transmission Date: 20211014
  Serious: Yes (Other)
  Sender: FDA-Public Use
  Company Number: CO-EMD SERONO-9168908

PATIENT
  Age: 66 Year
  Sex: Female
  Weight: 51 kg

DRUGS (12)
  1. METFORMIN [Suspect]
     Active Substance: METFORMIN HYDROCHLORIDE
     Indication: DIABETES MELLITUS
  2. JARDIANCE [Concomitant]
     Active Substance: EMPAGLIFLOZIN
     Indication: PRODUCT USED FOR UNKNOWN INDICATION
  3. CHLOROQUINE. [Concomitant]
     Active Substance: CHLOROQUINE
     Indication: PRODUCT USED FOR UNKNOWN INDICATION
  4. SULFASALAZINE. [Concomitant]
     Active Substance: SULFASALAZINE
     Indication: PRODUCT USED FOR UNKNOWN INDICATION
  5. OCTREOTIDE. [Suspect]
     Active Substance: OCTREOTIDE
     Dosage: SANDOSTATIN LAR READYFILL SYRINGE (OCTREOTIDE WITH POLY(D L?LACTIDE?CO?GLYCOLIDE))
  6. OCTREOTIDE. [Suspect]
     Active Substance: OCTREOTIDE
     Dosage: SANDOSTATIN LAR VIAL ADAPTOR ;(OCTREOTIDE WITH POLY(D L?LACTIDE?CO?GLYCOLIDE)) INJECTION
  7. OCTREOTIDE. [Suspect]
     Active Substance: OCTREOTIDE
     Dosage: SANDOSTATIN MONOJECT SAFETY ; NEEDLE (OCTREOTIDE WITH POLY(D L?LACTIDE?CO?GLYCOLIDE)) INJECTION
  8. AMLODIPINE [Suspect]
     Active Substance: AMLODIPINE BESYLATE
     Indication: HYPERTENSION
  9. VITAMIN D                          /00107901/ [Concomitant]
     Active Substance: ERGOCALCIFEROL
     Indication: PRODUCT USED FOR UNKNOWN INDICATION
  10. OCTREOTIDE. [Suspect]
     Active Substance: OCTREOTIDE
     Indication: GASTROENTEROPANCREATIC NEUROENDOCRINE TUMOUR DISEASE
     Route: 030
  11. LOSARTAN. [Suspect]
     Active Substance: LOSARTAN
     Indication: HYPERTENSION
  12. CALCIUM [Concomitant]
     Active Substance: CALCIUM
     Indication: PRODUCT USED FOR UNKNOWN INDICATION

REACTIONS (2)
  - Hepatic failure [Unknown]
  - Hot flush [Unknown]
